FAERS Safety Report 4288185-1 (Version None)
Quarter: 2004Q1

REPORT INFORMATION
  Report Type: 
  Country: None (occurrence: None)
  Receive Date: 20040209
  Receipt Date: 20030902
  Transmission Date: 20041129
  Serious: No
  Sender: FDA-Public Use
  Company Number: US-GLAXOSMITHKLINE-A0424311A

PATIENT
  Age: 40 Year
  Sex: Female

DRUGS (4)
  1. PAXIL [Suspect]
     Dosage: 20MG PER DAY
     Route: 048
  2. SPIRONOLACTONE [Concomitant]
  3. MULTI-VITAMIN [Concomitant]
  4. OMEGA OIL [Concomitant]

REACTIONS (4)
  - APATHY [None]
  - DRUG INEFFECTIVE [None]
  - FATIGUE [None]
  - YAWNING [None]
